FAERS Safety Report 6162656-5 (Version None)
Quarter: 2009Q2

REPORT INFORMATION
  Report Type: 
  Country: None (occurrence: None)
  Receive Date: 20090421
  Receipt Date: 20080923
  Transmission Date: 20091009
  Serious: Yes (Other)
  Sender: FDA-Public Use
  Company Number: US-ASTRAZENECA-2008UW19903

PATIENT
  Age: 83 Year
  Sex: Male
  Weight: 72.6 kg

DRUGS (3)
  1. CASODEX [Suspect]
     Indication: PROSTATE CANCER
     Dosage: 50 MG
     Route: 048
  2. LUPRON [Concomitant]
  3. COZAAR [Concomitant]

REACTIONS (1)
  - PULMONARY FIBROSIS [None]
